FAERS Safety Report 11990707 (Version 1)
Quarter: 2016Q1

REPORT INFORMATION
  Report Type: Spontaneous
  Country: US (occurrence: US)
  Receive Date: 20160202
  Receipt Date: 20160202
  Transmission Date: 20160526
  Serious: No
  Sender: FDA-Public Use
  Company Number: US-GALDERMA-US15001144

PATIENT
  Age: 21 Year
  Sex: Female

DRUGS (5)
  1. CETAPHIL DERMACONTROL SPF 30 [Concomitant]
     Active Substance: AVOBENZONE\OCTISALATE\OCTOCRYLENE
     Indication: PROPHYLAXIS AGAINST SOLAR RADIATION
     Route: 061
  2. CETAPHIL DERMACONTROL FOAM WASH [Concomitant]
     Active Substance: COSMETICS
     Indication: THERAPEUTIC SKIN CARE TOPICAL
     Route: 061
  3. EPIDUO [Suspect]
     Active Substance: ADAPALENE\BENZOYL PEROXIDE
     Indication: ACNE
     Dosage: 0.1%/2.5%
     Route: 061
     Dates: start: 20150303
  4. FLUOXETINE HYDROCHLORIDE. [Concomitant]
     Active Substance: FLUOXETINE HYDROCHLORIDE
     Indication: DEPRESSION
     Route: 048
  5. CLINDAMYCIN TOPICAL GEL [Concomitant]
     Indication: ACNE
     Route: 061
     Dates: start: 20150303

REACTIONS (4)
  - Skin burning sensation [Recovered/Resolved]
  - Pain of skin [Recovered/Resolved]
  - Pruritus [Recovered/Resolved]
  - Skin discomfort [Unknown]

NARRATIVE: CASE EVENT DATE: 20150303
